FAERS Safety Report 13763299 (Version 1)
Quarter: 2017Q3

REPORT INFORMATION
  Report Type: Spontaneous
  Country: US (occurrence: US)
  Receive Date: 20170718
  Receipt Date: 20170718
  Transmission Date: 20171127
  Serious: No
  Sender: FDA-Public Use
  Company Number: None

PATIENT
  Age: 57 Year
  Sex: Female
  Weight: 70.37 kg

DRUGS (1)
  1. METRONIDAZOLE TAB 500MG [Suspect]
     Active Substance: METRONIDAZOLE
     Indication: INFECTION
     Dates: start: 20170703, end: 20170705

REACTIONS (4)
  - Dysgeusia [None]
  - Feeling abnormal [None]
  - Abdominal discomfort [None]
  - Therapy cessation [None]
